FAERS Safety Report 5760257-1 (Version None)
Quarter: 2008Q2

REPORT INFORMATION
  Report Type: 
  Country: None (occurrence: None)
  Receive Date: 20080602
  Receipt Date: 20080521
  Transmission Date: 20081010
  Serious: Yes (Death, Hospitalization)
  Sender: FDA-Public Use
  Company Number: DE-JNJFOC-20070600129

PATIENT
  Age: 76 Year
  Sex: Male
  Weight: 72 kg

DRUGS (1)
  1. DECITABINE        (DECITABINE)        LYOPHILIZED POWDER [Suspect]
     Indication: MYELODYSPLASTIC SYNDROME
     Dosage: 15 MG/M2, 1 IN 8 HOUR, INTRAVENOUS
     Route: 042
     Dates: start: 20060918, end: 20060921

REACTIONS (5)
  - ERYSIPELAS [None]
  - FEBRILE NEUTROPENIA [None]
  - MUCOSAL INFLAMMATION [None]
  - PNEUMONIA [None]
  - RESPIRATORY FAILURE [None]
